FAERS Safety Report 6039798-8 (Version None)
Quarter: 2009Q1

REPORT INFORMATION
  Report Type: 
  Country: None (occurrence: None)
  Receive Date: 20090116
  Receipt Date: 20090108
  Transmission Date: 20090719
  Serious: Yes (Hospitalization)
  Sender: FDA-Public Use
  Company Number: US-BAYER-200832723NA

PATIENT
  Age: 30 Year
  Sex: Female
  Weight: 103 kg

DRUGS (2)
  1. MIRENA [Suspect]
     Indication: CONTRACEPTION
     Route: 015
     Dates: start: 20071203, end: 20080709
  2. NASACORT [Concomitant]
     Indication: MULTIPLE ALLERGIES
     Route: 045

REACTIONS (4)
  - ABDOMINAL DISTENSION [None]
  - ABDOMINAL PAIN LOWER [None]
  - ENTEROCOCCAL INFECTION [None]
  - VAGINAL HAEMORRHAGE [None]
